FAERS Safety Report 15223326 (Version 1)
Quarter: 2018Q3

REPORT INFORMATION
  Report Type: Spontaneous
  Country: US (occurrence: US)
  Receive Date: 20180731
  Receipt Date: 20180731
  Transmission Date: 20181010
  Serious: No
  Sender: FDA-Public Use
  Company Number: US-ACTELION-A-US2018-174300

PATIENT
  Age: 82 Year
  Sex: Female
  Weight: 78.5 kg

DRUGS (5)
  1. UPTRAVI [Suspect]
     Active Substance: SELEXIPAG
     Indication: PRODUCT USED FOR UNKNOWN INDICATION
     Dosage: UNK
     Route: 048
  2. TYVASO [Suspect]
     Active Substance: TREPROSTINIL
     Dosage: 54?72 MCG (9?12 BREATHS), QID INHALATION
     Route: 055
     Dates: start: 20160303
  3. COUMADIN [Concomitant]
     Active Substance: WARFARIN SODIUM
  4. ADCIRCA [Concomitant]
     Active Substance: TADALAFIL
  5. TYVASO [Suspect]
     Active Substance: TREPROSTINIL
     Indication: PULMONARY HYPERTENSION
     Dosage: 18?54 MCG (3?9 BREATHS), QID INHALATION
     Route: 055
     Dates: start: 20160303

REACTIONS (3)
  - Flatulence [Unknown]
  - Headache [Unknown]
  - Eructation [Unknown]

NARRATIVE: CASE EVENT DATE: 2018
